FAERS Safety Report 8277413-3 (Version None)
Quarter: 2012Q2

REPORT INFORMATION
  Report Type: 
  Country: None (occurrence: None)
  Receive Date: 20120412
  Receipt Date: 20120410
  Transmission Date: 20120825
  Serious: Yes (Hospitalization)
  Sender: FDA-Public Use
  Company Number: PHHY2012NL017865

PATIENT
  Sex: Female
  Weight: 65 kg

DRUGS (3)
  1. BACLOFEN [Concomitant]
     Indication: MUSCLE SPASMS
     Dosage: 100 MG, UNK
     Route: 048
     Dates: start: 20110624
  2. GILENYA [Suspect]
     Indication: MULTIPLE SCLEROSIS
     Dosage: 0.5 MG, QD
     Route: 048
     Dates: start: 20110831, end: 20120229
  3. CALCIUM CARBONATE [Concomitant]
     Indication: VITAMIN D DEFICIENCY
     Dosage: UNK UKN, UNK

REACTIONS (6)
  - OEDEMA PERIPHERAL [None]
  - PAIN IN EXTREMITY [None]
  - CELLULITIS [None]
  - DERMATITIS [None]
  - ERYTHEMA [None]
  - LYMPHOCYTE COUNT DECREASED [None]
